FAERS Safety Report 4299551-2 (Version None)
Quarter: 2004Q1

REPORT INFORMATION
  Report Type: 
  Country: None (occurrence: None)
  Receive Date: 20040217
  Receipt Date: 20040202
  Transmission Date: 20041129
  Serious: Yes (Death, Other)
  Sender: FDA-Public Use
  Company Number: 2004005911

PATIENT
  Sex: Female

DRUGS (5)
  1. SILDENAFIL (SILDENAFIL) [Suspect]
     Indication: PULMONARY HYPERTENSION
     Dosage: 300 MG (DAILY), ORAL
     Route: 048
     Dates: start: 20020912, end: 20031209
  2. METILDIGOXIN (METIDIGOXIN) [Concomitant]
  3. WARFARIN SODIUM [Concomitant]
  4. SPIRONOLACTONE [Concomitant]
  5. FUROSEMIDE [Concomitant]

REACTIONS (16)
  - ABDOMINAL PAIN [None]
  - CARDIAC MURMUR [None]
  - CARDIOGENIC SHOCK [None]
  - COUGH [None]
  - CYANOSIS [None]
  - GASTRIC NEOPLASM [None]
  - HAEMATOMA [None]
  - POST PROCEDURAL COMPLICATION [None]
  - RENAL FAILURE ACUTE [None]
  - RESPIRATORY FAILURE [None]
  - RESPIRATORY TRACT INFECTION [None]
  - RETROPERITONEAL HAEMATOMA [None]
  - SEPSIS [None]
  - TACHYCARDIA [None]
  - TACHYPNOEA [None]
  - WHITE BLOOD CELL COUNT ABNORMAL [None]
